FAERS Safety Report 6092678-4 (Version None)
Quarter: 2009Q1

REPORT INFORMATION
  Report Type: 
  Country: None (occurrence: None)
  Receive Date: 20090225
  Receipt Date: 20090216
  Transmission Date: 20090719
  Serious: Yes (Other)
  Sender: FDA-Public Use
  Company Number: US-AVENTIS-200715144US

PATIENT
  Age: 27 Year
  Sex: Male

DRUGS (3)
  1. DDAVP [Suspect]
     Dosage: DOSE: 3 TABLETS DECREASED TO ONE SIXTEENTH OF A 0.1 MG TABLET
     Route: 048
     Dates: end: 20081001
  2. DDAVP [Suspect]
     Dosage: DOSE: UNK
     Route: 045
  3. WELLBUTRIN [Concomitant]
     Dosage: DOSE: UNK

REACTIONS (2)
  - COGNITIVE DISORDER [None]
  - DEPRESSION [None]
